FAERS Safety Report 5374654-X (Version None)
Quarter: 2007Q2

REPORT INFORMATION
  Report Type: 
  Country: None (occurrence: None)
  Receive Date: 20070621
  Receipt Date: 20070308
  Transmission Date: 20071010
  Serious: Yes (Other)
  Sender: FDA-Public Use
  Company Number: 13705900

PATIENT
  Sex: Female
  Weight: 95.24 kg

DRUGS (1)
  1. EMSAM [Suspect]
     Dates: start: 20060115

REACTIONS (1)
  - BLOOD PRESSURE INCREASED [None]
